FAERS Safety Report 14370367 (Version 2)
Quarter: 2018Q2

REPORT INFORMATION
  Report Type: Spontaneous
  Country: GB (occurrence: GB)
  Receive Date: 20180110
  Receipt Date: 20180509
  Transmission Date: 20180711
  Serious: Yes (Hospitalization, Other)
  Sender: FDA-Public Use
  Company Number: GB-ACCORD-062685

PATIENT
  Age: 13 Year
  Sex: Male
  Weight: 54.7 kg

DRUGS (16)
  1. LENVATINIB [Suspect]
     Active Substance: LENVATINIB
     Indication: OSTEOSARCOMA RECURRENT
     Dosage: ALSO RECEIVED AT THE DOSE OF 18 MG/DAY (1 IN 1 D) FROM 14-NOV-2017 AND FROM DEC-2017 TO 25-JAN-2018
     Route: 048
     Dates: start: 20170911
  2. NABILONE [Concomitant]
     Active Substance: NABILONE
  3. GABAPENTIN. [Concomitant]
     Active Substance: GABAPENTIN
  4. ONDANSETRON [Concomitant]
     Active Substance: ONDANSETRON
  5. DOCUSATE/DOCUSATE CALCIUM/DOCUSATE POTASSIUM/DOCUSATE SODIUM [Concomitant]
  6. METOCLOPRAMIDE. [Concomitant]
     Active Substance: METOCLOPRAMIDE
  7. ETOPOSIDE. [Suspect]
     Active Substance: ETOPOSIDE
     Indication: OSTEOSARCOMA RECURRENT
     Dosage: ON DAY 1-3 OF EVERY 21-DAY CYCLE FOR 5 CYCLES
     Route: 042
     Dates: start: 20170911, end: 20171205
  8. APREPITANT. [Concomitant]
     Active Substance: APREPITANT
  9. CYCLIZINE [Concomitant]
     Active Substance: CYCLIZINE
  10. MORPHINE [Concomitant]
     Active Substance: MORPHINE
  11. LORAZEPAM. [Concomitant]
     Active Substance: LORAZEPAM
  12. DEXAMETHASONE. [Concomitant]
     Active Substance: DEXAMETHASONE
  13. IFOSFAMIDE. [Suspect]
     Active Substance: IFOSFAMIDE
     Indication: OSTEOSARCOMA RECURRENT
     Dosage: 3000 MG/M2 ON DAYS 1-3 OF EVERY 21 DAYS FOR 5 CYCLES
     Route: 042
     Dates: start: 20170911, end: 20171204
  14. MOVICOL [Concomitant]
     Active Substance: POLYETHYLENE GLYCOL 3350\POTASSIUM CHLORIDE\SODIUM BICARBONATE\SODIUM CHLORIDE
  15. PARACETAMOL [Concomitant]
     Active Substance: ACETAMINOPHEN
  16. ENALAPRIL [Concomitant]
     Active Substance: ENALAPRIL

REACTIONS (9)
  - Epistaxis [Recovered/Resolved]
  - Dehydration [Unknown]
  - Arthralgia [Unknown]
  - Toxic encephalopathy [Recovered/Resolved]
  - Febrile neutropenia [Recovered/Resolved]
  - Stomatitis [Recovered/Resolved]
  - Vomiting [Recovered/Resolved]
  - Off label use [Unknown]
  - Diarrhoea [Recovered/Resolved]

NARRATIVE: CASE EVENT DATE: 20171124
